FAERS Safety Report 10682071 (Version 2)
Quarter: 2015Q2

REPORT INFORMATION
  Report Type: Spontaneous
  Country: CH (occurrence: None)
  Receive Date: 20141224
  Receipt Date: 20150424
  Transmission Date: 20150821
  Serious: Yes (Other)
  Sender: FDA-Public Use
  Company Number: 20140825

PATIENT
  Age: 32 Year
  Sex: Male
  Weight: 50 kg

DRUGS (10)
  1. METHADONE HYDROCHLORIDE. [Concomitant]
     Active Substance: METHADONE HYDROCHLORIDE
  2. FOLIC ACID. [Concomitant]
     Active Substance: FOLIC ACID
  3. ALDACTONE [Concomitant]
     Active Substance: SPIRONOLACTONE
  4. LACTULOSE. [Concomitant]
     Active Substance: LACTULOSE
  5. CARVEDILOL. [Concomitant]
     Active Substance: CARVEDILOL
  6. PYRIDOXINE HYDROCHLORIDE. [Concomitant]
     Active Substance: PYRIDOXINE HYDROCHLORIDE
  7. MAGNESIUM VERLA N (MAGNESIUM CITRATE) [Concomitant]
  8. FERINJECT [Suspect]
     Active Substance: FERRIC CARBOXYMALTOSE
     Indication: IRON DEFICIENCY ANAEMIA
     Dosage: 1 IN 1 TOTAL, NOT OTHERWISE SPECIFIED
     Route: 041
     Dates: start: 20141127, end: 20141127
  9. CIPROBAY (CIPROFLOXACIN) [Concomitant]
     Active Substance: CIPROFLOXACIN
  10. PANTOZOL [Concomitant]
     Active Substance: PANTOPRAZOLE SODIUM

REACTIONS (4)
  - Serum ferritin increased [None]
  - Pyrexia [None]
  - Product label confusion [None]
  - Accidental overdose [None]

NARRATIVE: CASE EVENT DATE: 2014
